FAERS Safety Report 6938040-0 (Version None)
Quarter: 2010Q3

REPORT INFORMATION
  Report Type: 
  Country: None (occurrence: None)
  Receive Date: 20100824
  Receipt Date: 20100816
  Transmission Date: 20110219
  Serious: Yes (Other)
  Sender: FDA-Public Use
  Company Number: US-TEVA-244938USA

PATIENT
  Age: 7 Year
  Sex: Male

DRUGS (3)
  1. ETOPOSIDE [Suspect]
     Indication: LYMPHOHISTIOCYTOSIS
     Dosage: 150 MG/M2 TWICE WEEKLY
  2. DEXAMETHASONE [Concomitant]
  3. CYCLOSPORINE [Concomitant]

REACTIONS (1)
  - MYOCARDIAL INFARCTION [None]
